FAERS Safety Report 11810680 (Version 2)
Quarter: 2015Q4

REPORT INFORMATION
  Report Type: Spontaneous
  Country: JP (occurrence: JP)
  Receive Date: 20151208
  Receipt Date: 20151231
  Transmission Date: 20160305
  Serious: Yes (Hospitalization)
  Sender: FDA-Public Use
  Company Number: JP-BRISTOL-MYERS SQUIBB COMPANY-BMS-2015-043918

PATIENT
  Age: 82 Year
  Sex: Female
  Weight: 48.4 kg

DRUGS (2)
  1. ELIQUIS [Suspect]
     Active Substance: APIXABAN
     Indication: CEREBROVASCULAR ACCIDENT PROPHYLAXIS
     Dosage: 2.5 MG, BID
     Route: 048
     Dates: start: 20141105
  2. BISOPROLOL FUMERATE [Suspect]
     Active Substance: BISOPROLOL FUMARATE
     Indication: TACHYCARDIA
     Dosage: 2.5 MG, QD
     Route: 048
     Dates: start: 20150224

REACTIONS (2)
  - Dizziness [Not Recovered/Not Resolved]
  - Creatinine renal clearance [Recovering/Resolving]

NARRATIVE: CASE EVENT DATE: 20150610
